FAERS Safety Report 5488972-8 (Version None)
Quarter: 2007Q4

REPORT INFORMATION
  Report Type: 
  Country: None (occurrence: None)
  Receive Date: 20071016
  Receipt Date: 20071008
  Transmission Date: 20080405
  Serious: Yes (Disabling)
  Sender: FDA-Public Use
  Company Number: 2007SP019350

PATIENT
  Age: 51 Year
  Sex: Male

DRUGS (2)
  1. TEMODAL [Suspect]
     Indication: GLIOMA
     Dosage: 150 MG;QD;PO, 400 MG;QD;PO
     Route: 048
     Dates: start: 20070308, end: 20070423
  2. TEMODAL [Suspect]
     Indication: GLIOMA
     Dosage: 150 MG;QD;PO, 400 MG;QD;PO
     Route: 048
     Dates: start: 20070525, end: 20070529

REACTIONS (9)
  - ALANINE AMINOTRANSFERASE INCREASED [None]
  - ANAEMIA [None]
  - ASPARTATE AMINOTRANSFERASE INCREASED [None]
  - BLOOD BILIRUBIN INCREASED [None]
  - BLOOD LACTATE DEHYDROGENASE INCREASED [None]
  - GAMMA-GLUTAMYLTRANSFERASE INCREASED [None]
  - HEPATIC FUNCTION ABNORMAL [None]
  - NEUTROPENIA [None]
  - THROMBOCYTOPENIA [None]
